FAERS Safety Report 4704118-5 (Version None)
Quarter: 2005Q2

REPORT INFORMATION
  Report Type: 
  Country: None (occurrence: None)
  Receive Date: 20050630
  Receipt Date: 20050328
  Transmission Date: 20051028
  Serious: Yes (Other)
  Sender: FDA-Public Use
  Company Number: US-SANOFI-SYNTHELABO-A03200500897

PATIENT
  Sex: Male
  Weight: 65.76 kg

DRUGS (7)
  1. PLAVIX [Suspect]
     Indication: CORONARY ANGIOPLASTY
     Route: 048
     Dates: start: 20041228
  2. NORVASC [Concomitant]
     Indication: DRUG USE FOR UNKNOWN INDICATION
     Route: 048
     Dates: start: 20041201
  3. TOPROL-XL [Concomitant]
     Indication: DRUG USE FOR UNKNOWN INDICATION
     Route: 048
  4. ZETIA [Concomitant]
     Indication: DRUG USE FOR UNKNOWN INDICATION
     Route: 048
     Dates: start: 20040101
  5. FLOMAX [Concomitant]
     Indication: DRUG USE FOR UNKNOWN INDICATION
     Route: 048
  6. PRAVACHOL [Concomitant]
     Route: 048
     Dates: start: 20050401
  7. VITAMINS FOR EYES [Concomitant]
     Dosage: UNK
     Route: 065

REACTIONS (4)
  - CONTUSION [None]
  - EYE HAEMORRHAGE [None]
  - RETINAL VASCULAR THROMBOSIS [None]
  - VISUAL DISTURBANCE [None]
